FAERS Safety Report 8413896-3 (Version None)
Quarter: 2012Q2

REPORT INFORMATION
  Report Type: 
  Country: None (occurrence: None)
  Receive Date: 20120323
  Receipt Date: 20110321
  Transmission Date: 20120825
  Serious: Yes (Other)
  Sender: FDA-Public Use
  Company Number: 163-21880-11022804

PATIENT
  Age: 63 Year
  Sex: Female

DRUGS (5)
  1. GLYBURIDE [Concomitant]
  2. AREDIA [Concomitant]
  3. DECADRON [Concomitant]
  4. JANUVIA (SITAGLIPTIN PHOSPHATE) (UNKNOWN) [Concomitant]
  5. REVLIMID [Suspect]
     Indication: MULTIPLE MYELOMA
     Dosage: 25 MG, 1 IN 1 D, PO
     Route: 048
     Dates: start: 20090901

REACTIONS (4)
  - MUSCLE SPASMS [None]
  - INFLUENZA [None]
  - BRONCHITIS [None]
  - RASH [None]
